FAERS Safety Report 8494100-7 (Version None)
Quarter: 2012Q3

REPORT INFORMATION
  Report Type: 
  Country: None (occurrence: None)
  Receive Date: 20120702
  Receipt Date: 20120702
  Transmission Date: 20120928
  Serious: Yes (Other)
  Sender: FDA-Public Use
  Company Number: None

PATIENT
  Age: 44 Year
  Sex: Female
  Weight: 81.6475 kg

DRUGS (1)
  1. EMSAM [Suspect]
     Indication: DEPRESSION

REACTIONS (2)
  - CONVULSION [None]
  - DRUG DOSE OMISSION [None]
